FAERS Safety Report 4848911-7 (Version None)
Quarter: 2005Q4

REPORT INFORMATION
  Report Type: 
  Country: None (occurrence: None)
  Receive Date: 20051208
  Receipt Date: 20051005
  Transmission Date: 20060501
  Serious: Yes (Death, Hospitalization)
  Sender: FDA-Public Use
  Company Number: US-MERCK-0510USA04221

PATIENT
  Age: 70 Year
  Sex: Female
  Weight: 66 kg

DRUGS (2)
  1. VIOXX [Suspect]
     Indication: PAIN IN EXTREMITY
     Route: 048
     Dates: start: 20010101, end: 20040101
  2. VIOXX [Suspect]
     Indication: OEDEMA PERIPHERAL
     Route: 048
     Dates: start: 20010101, end: 20040101

REACTIONS (4)
  - ARTERIOSCLEROSIS CORONARY ARTERY [None]
  - CARDIOVASCULAR DISORDER [None]
  - CHEST PAIN [None]
  - DYSPNOEA [None]
